FAERS Safety Report 17911357 (Version 3)
Quarter: 2020Q4

REPORT INFORMATION
  Report Type: Spontaneous
  Country: TN (occurrence: TN)
  Receive Date: 20200618
  Receipt Date: 20201027
  Transmission Date: 20210113
  Serious: Yes (Hospitalization, Other)
  Sender: FDA-Public Use
  Company Number: TN-PFIZER INC-2020234312

PATIENT
  Age: 48 Year
  Sex: Female

DRUGS (1)
  1. DOCETAXEL. [Suspect]
     Active Substance: DOCETAXEL
     Indication: BREAST CANCER FEMALE
     Dosage: 100 MG/M2, CYCLIC (FIRST CYCLE)

REACTIONS (3)
  - Injection site extravasation [Recovering/Resolving]
  - Neutropenia [Recovering/Resolving]
  - Aplasia [Recovered/Resolved]
